FAERS Safety Report 7158939-2 (Version None)
Quarter: 2010Q4

REPORT INFORMATION
  Report Type: 
  Country: None (occurrence: None)
  Receive Date: 20101214
  Receipt Date: 20101210
  Transmission Date: 20110411
  Serious: Yes (Death, Disabling)
  Sender: FDA-Public Use
  Company Number: PHHY2010JP59580

PATIENT
  Sex: Female
  Weight: 60 kg

DRUGS (40)
  1. NEORAL [Suspect]
     Indication: INTERSTITIAL LUNG DISEASE
     Dosage: 150 MG/DAY
     Route: 048
     Dates: start: 20100603, end: 20100609
  2. NEORAL [Suspect]
     Dosage: 80 MG/DAY
     Route: 048
     Dates: start: 20100610, end: 20100817
  3. NEORAL [Suspect]
     Dosage: 100 MG/DAY
     Route: 048
     Dates: start: 20100818, end: 20100906
  4. PREDONINE [Suspect]
     Indication: INTERSTITIAL LUNG DISEASE
     Dosage: 60 MG
     Route: 048
     Dates: start: 20100426, end: 20100503
  5. PREDONINE [Suspect]
     Dosage: 50 MG
     Route: 048
     Dates: start: 20100504, end: 20100530
  6. PREDONINE [Suspect]
     Dosage: 40 MG
     Route: 048
     Dates: start: 20100531, end: 20100606
  7. PREDONINE [Suspect]
     Dosage: 30 MG
     Route: 048
     Dates: start: 20100607, end: 20100613
  8. PREDONINE [Suspect]
     Dosage: 20 MG
     Route: 048
     Dates: start: 20100614, end: 20100620
  9. PREDONINE [Suspect]
     Dosage: 10 MG
     Route: 048
     Dates: start: 20100621, end: 20100627
  10. PREDONINE [Suspect]
     Dosage: 60 MG
     Route: 048
     Dates: start: 20100628, end: 20100727
  11. PREDONINE [Suspect]
     Dosage: 50 MG
     Dates: start: 20100818, end: 20100831
  12. PREDONINE [Suspect]
     Dosage: UNK
     Route: 048
     Dates: start: 20100901, end: 20100908
  13. PREDONINE-1 [Suspect]
     Indication: INTERSTITIAL LUNG DISEASE
     Dosage: 60 MG
     Route: 042
     Dates: start: 20100909, end: 20100913
  14. PREDONINE-1 [Suspect]
     Dosage: 40 MG
     Route: 042
     Dates: start: 20100914, end: 20100915
  15. PREDONINE-1 [Suspect]
     Dosage: 60 MG
     Route: 042
     Dates: start: 20100919, end: 20100926
  16. PREDONINE-1 [Suspect]
     Dosage: 60 MG
     Route: 042
     Dates: start: 20100930, end: 20101001
  17. PREDONINE-1 [Suspect]
     Dosage: 50 MG
     Route: 042
     Dates: start: 20101002, end: 20101004
  18. PREDONINE-1 [Suspect]
     Dosage: 40 MG
     Route: 042
     Dates: start: 20101005, end: 20101006
  19. PREDONINE-1 [Suspect]
     Dosage: 20 MG
     Route: 042
     Dates: start: 20101007, end: 20101012
  20. SOL-MELCORT [Suspect]
     Indication: INTERSTITIAL LUNG DISEASE
     Dosage: 1000 MG
     Route: 042
     Dates: start: 20100728, end: 20100730
  21. SOL-MELCORT [Suspect]
     Dosage: 1000 MG
     Route: 042
     Dates: start: 20100804, end: 20100806
  22. SOL-MELCORT [Suspect]
     Dosage: 1000 MG
     Route: 042
     Dates: start: 20100811, end: 20100813
  23. SOL-MELCORT [Suspect]
     Dosage: 1000 MG
     Route: 042
     Dates: start: 20100916, end: 20100918
  24. SOL-MELCORT [Suspect]
     Dosage: 1000 MG
     Route: 042
     Dates: start: 20100927, end: 20100929
  25. IMMUNOSUPPRESSANTS [Concomitant]
     Dosage: UNK
     Dates: end: 20100907
  26. STEROIDS NOS [Concomitant]
  27. MEROPENEM [Concomitant]
  28. PHENYTOIN [Concomitant]
  29. VANCOMYCIN [Concomitant]
     Dosage: UNK
     Dates: start: 20100916
  30. GANCICLOVIR [Concomitant]
     Indication: CYTOMEGALOVIRUS INFECTION
  31. PIPERACILLIN W/TAZOBACTAM [Concomitant]
     Dosage: UNK
     Dates: start: 20100927, end: 20100928
  32. GENTAMICIN [Concomitant]
  33. MINOCYCLINE HCL [Concomitant]
  34. FOY [Concomitant]
  35. HEPARIN [Concomitant]
  36. PLATELETS [Concomitant]
     Indication: PLATELET COUNT DECREASED
     Dosage: 10 UNITS
  37. AMLODIPINE OD [Concomitant]
     Indication: HYPERTENSION
     Dosage: 5 MG
     Route: 048
  38. BLOPRESS [Concomitant]
     Indication: HYPERTENSION
     Dosage: 8 MG
     Route: 048
  39. PARIET [Concomitant]
     Dosage: 10 MG
     Route: 048
  40. BONALON [Concomitant]
     Dosage: 35 MG
     Route: 048

REACTIONS (25)
  - ALANINE AMINOTRANSFERASE INCREASED [None]
  - ALTERED STATE OF CONSCIOUSNESS [None]
  - ANTIBIOTIC RESISTANT STAPHYLOCOCCUS TEST POSITIVE [None]
  - ASPARTATE AMINOTRANSFERASE INCREASED [None]
  - BLOOD ALKALINE PHOSPHATASE INCREASED [None]
  - BLOOD PRESSURE DECREASED [None]
  - BLOOD UREA INCREASED [None]
  - CARDIAC ARREST [None]
  - CITROBACTER INFECTION [None]
  - CYTOMEGALOVIRUS TEST POSITIVE [None]
  - DISSEMINATED INTRAVASCULAR COAGULATION [None]
  - DYSKINESIA [None]
  - DYSPNOEA [None]
  - ENCEPHALITIS [None]
  - ESCHERICHIA URINARY TRACT INFECTION [None]
  - HEART RATE INCREASED [None]
  - HEPATIC FUNCTION ABNORMAL [None]
  - MULTI-ORGAN FAILURE [None]
  - PLATELET COUNT DECREASED [None]
  - PLEURAL EFFUSION [None]
  - PSEUDOMONAL SEPSIS [None]
  - PYREXIA [None]
  - RENAL FAILURE [None]
  - RESPIRATORY FAILURE [None]
  - SIMPLEX VIRUS TEST POSITIVE [None]
